FAERS Safety Report 4860919-4 (Version None)
Quarter: 2005Q4

REPORT INFORMATION
  Report Type: 
  Country: None (occurrence: None)
  Receive Date: 20051220
  Receipt Date: 20051209
  Transmission Date: 20060501
  Serious: Yes (Hospitalization, Disabling)
  Sender: FDA-Public Use
  Company Number: PHBS2005DK18419

PATIENT
  Age: 70 Year
  Sex: Male
  Weight: 70 kg

DRUGS (1)
  1. ZOMETA [Suspect]
     Indication: PAIN
     Dosage: 4 MG EVER 3 WEEKS
     Dates: start: 20050902, end: 20051017

REACTIONS (2)
  - ANURIA [None]
  - DIALYSIS [None]
